FAERS Safety Report 5451429-4 (Version None)
Quarter: 2007Q3

REPORT INFORMATION
  Report Type: 
  Country: None (occurrence: None)
  Receive Date: 20070913
  Receipt Date: 20070906
  Transmission Date: 20080115
  Serious: Yes (Hospitalization)
  Sender: FDA-Public Use
  Company Number: B0486752A

PATIENT
  Age: 10 Year
  Sex: Male

DRUGS (2)
  1. CLAVAMOX [Suspect]
     Route: 048
     Dates: start: 20050301, end: 20050301
  2. CEFPROZIL [Suspect]
     Route: 048
     Dates: start: 20050301

REACTIONS (5)
  - CONDITION AGGRAVATED [None]
  - ERYTHEMA [None]
  - PRURITUS [None]
  - RASH PAPULAR [None]
  - SKIN EXFOLIATION [None]
